FAERS Safety Report 9476804 (Version 1)
Quarter: 2013Q3

REPORT INFORMATION
  Report Type: Spontaneous
  Country: US (occurrence: US)
  Receive Date: 20130826
  Receipt Date: 20130826
  Transmission Date: 20140515
  Serious: No
  Sender: FDA-Public Use
  Company Number: US-TARO-2012P1050514

PATIENT
  Age: 61 Year
  Sex: Female
  Weight: 81.65 kg

DRUGS (3)
  1. CLOBETASOL PROPIONATE OINTMENT USP 0.05% [Suspect]
     Indication: ECZEMA
     Route: 061
     Dates: start: 201205
  2. HYZAAR [Concomitant]
  3. METFORMIN [Concomitant]

REACTIONS (1)
  - Skin hypopigmentation [Recovering/Resolving]
